FAERS Safety Report 6031733-1 (Version None)
Quarter: 2009Q1

REPORT INFORMATION
  Report Type: 
  Country: None (occurrence: None)
  Receive Date: 20090107
  Receipt Date: 20090107
  Transmission Date: 20090719
  Serious: No
  Sender: FDA-Public Use
  Company Number: None

PATIENT
  Sex: Female
  Weight: 62.5964 kg

DRUGS (1)
  1. EFFEXOR XR [Suspect]

REACTIONS (3)
  - HAEMORRHAGE [None]
  - PARAESTHESIA [None]
  - VASCULAR RUPTURE [None]
